FAERS Safety Report 9402346 (Version 1)
Quarter: 2013Q3

REPORT INFORMATION
  Report Type: Spontaneous
  Country: FR (occurrence: FR)
  Receive Date: 20130716
  Receipt Date: 20130716
  Transmission Date: 20140515
  Serious: Yes (Hospitalization)
  Sender: FDA-Public Use
  Company Number: FR-PFIZER INC-2013206109

PATIENT
  Age: 56 Year
  Sex: Female

DRUGS (5)
  1. SPIRONOLACTONE [Suspect]
     Indication: CIRRHOSIS ALCOHOLIC
     Dosage: 75 MG, 3X/DAY
     Dates: end: 201306
  2. LASILIX [Suspect]
     Indication: CIRRHOSIS ALCOHOLIC
     Dosage: 80 MG, DAILY
  3. INEXIUM [Concomitant]
     Dosage: 40 MG, 1X/DAY
     Route: 048
     Dates: start: 201304
  4. AVLOCARDYL [Concomitant]
     Indication: CIRRHOSIS ALCOHOLIC
     Dosage: 40 MG, 2X/DAY
     Route: 048
     Dates: start: 201304
  5. VITAMIN B1 AND B6 [Concomitant]
     Indication: CIRRHOSIS ALCOHOLIC

REACTIONS (2)
  - Anaemia [Unknown]
  - Renal failure [Unknown]
